FAERS Safety Report 8306556-0 (Version None)
Quarter: 2012Q2

REPORT INFORMATION
  Report Type: 
  Country: None (occurrence: None)
  Receive Date: 20120420
  Receipt Date: 20120420
  Transmission Date: 20120825
  Serious: No
  Sender: FDA-Public Use
  Company Number: None

PATIENT
  Age: 67 Year
  Sex: Female

DRUGS (8)
  1. ATENOLOL [Concomitant]
  2. ALLOPURINOL [Concomitant]
  3. MEGESTROL ACETATE [Concomitant]
  4. DECADRON [Concomitant]
  5. REVLIMID [Suspect]
     Indication: MULTIPLE MYELOMA
     Dosage: 10MG QDX21D/28D ORALLY
     Route: 048
  6. ZOVIRAX [Concomitant]
  7. VICODIN [Concomitant]
  8. OMEPRAZOLE [Concomitant]

REACTIONS (3)
  - DEHYDRATION [None]
  - ASTHENIA [None]
  - UPPER RESPIRATORY TRACT INFECTION [None]
